FAERS Safety Report 5620503-1 (Version None)
Quarter: 2008Q1

REPORT INFORMATION
  Report Type: 
  Country: None (occurrence: None)
  Receive Date: 20080208
  Receipt Date: 20080115
  Transmission Date: 20080703
  Serious: No
  Sender: FDA-Public Use
  Company Number: US-BOEHRINGER INGELHEIM GMBH, GERMANY-2008-BP-00744BP

PATIENT
  Sex: Female

DRUGS (5)
  1. MIRAPEX [Suspect]
     Indication: PARKINSON'S DISEASE
     Route: 048
     Dates: start: 20020101
  2. SINEMET [Concomitant]
     Indication: PARKINSON'S DISEASE
  3. PROVIGIL [Concomitant]
  4. VALIUM [Concomitant]
  5. EFFEXOR [Concomitant]

REACTIONS (1)
  - DYSKINESIA [None]
